FAERS Safety Report 12117473 (Version 3)
Quarter: 2016Q2

REPORT INFORMATION
  Report Type: Report from Study
  Country: US (occurrence: US)
  Receive Date: 20160225
  Receipt Date: 20160407
  Transmission Date: 20160815
  Serious: No
  Sender: FDA-Public Use
  Company Number: US-AMGEN-USASL2016020674

PATIENT
  Age: 47 Year
  Sex: Female

DRUGS (2)
  1. ENBREL [Suspect]
     Active Substance: ETANERCEPT
     Dosage: UNK
     Route: 065
  2. ENBREL [Suspect]
     Active Substance: ETANERCEPT
     Indication: RHEUMATOID ARTHRITIS
     Dosage: 50 MG, QWK
     Route: 065
     Dates: start: 20160209

REACTIONS (18)
  - Sinus disorder [Recovering/Resolving]
  - Musculoskeletal stiffness [Unknown]
  - Mood altered [Unknown]
  - Neuropathy peripheral [Unknown]
  - Nail discolouration [Unknown]
  - Thyroid disorder [Unknown]
  - Cough [Not Recovered/Not Resolved]
  - Dermal absorption impaired [Unknown]
  - Musculoskeletal disorder [Unknown]
  - Injection site pruritus [Unknown]
  - Drug ineffective [Unknown]
  - Injection site mass [Unknown]
  - Joint lock [Not Recovered/Not Resolved]
  - Pain in extremity [Unknown]
  - Peripheral swelling [Unknown]
  - Injection site erythema [Unknown]
  - Injection site pain [Unknown]
  - Limb injury [Unknown]

NARRATIVE: CASE EVENT DATE: 2016
